FAERS Safety Report 4313546-1 (Version None)
Quarter: 2004Q1

REPORT INFORMATION
  Report Type: 
  Country: None (occurrence: None)
  Receive Date: 20040308
  Receipt Date: 20040225
  Transmission Date: 20041129
  Serious: Yes (Other)
  Sender: FDA-Public Use
  Company Number: JP-GLAXOSMITHKLINE-B0324993A

PATIENT
  Sex: Male

DRUGS (3)
  1. RETROVIR [Suspect]
     Route: 048
  2. EPIVIR [Suspect]
     Route: 048
  3. EFAVIRENZ [Concomitant]
     Route: 048

REACTIONS (1)
  - HISTIOCYTOSIS HAEMATOPHAGIC [None]
